FAERS Safety Report 9126872 (Version 1)
Quarter: 2013Q1

REPORT INFORMATION
  Report Type: Spontaneous
  Country: ES (occurrence: ES)
  Receive Date: 20130228
  Receipt Date: 20130228
  Transmission Date: 20140127
  Serious: Yes (Life-Threatening, Hospitalization, Other)
  Sender: FDA-Public Use
  Company Number: ES-PFIZER INC-2013070293

PATIENT
  Age: 57 Year
  Sex: Female

DRUGS (6)
  1. ARTILOG [Suspect]
     Indication: RHEUMATOID ARTHRITIS
     Dosage: 200 MG, UNK
     Route: 048
     Dates: start: 201207, end: 20120917
  2. MYFORTIC [Suspect]
     Indication: RHEUMATOID ARTHRITIS
     Dosage: 180 MG, UNK
     Route: 048
     Dates: start: 201207, end: 20120917
  3. RITUXIMAB [Suspect]
     Indication: RHEUMATOID ARTHRITIS
     Dosage: UNK
     Route: 042
     Dates: start: 20120719, end: 20120802
  4. PREDNISONE [Concomitant]
     Dosage: UNK
     Dates: start: 201201
  5. IDEOS [Concomitant]
     Dosage: UNK
     Dates: start: 201207, end: 20120917
  6. PANTOPRAZOLE [Concomitant]
     Dosage: UNK
     Dates: start: 201207

REACTIONS (2)
  - Agranulocytosis [Recovered/Resolved]
  - Scleroderma [Not Recovered/Not Resolved]
